FAERS Safety Report 22646205 (Version 1)
Quarter: 2023Q2

REPORT INFORMATION
  Report Type: Spontaneous
  Country: CA (occurrence: CA)
  Receive Date: 20230627
  Receipt Date: 20230627
  Transmission Date: 20230722
  Serious: Yes (Other)
  Sender: FDA-Public Use
  Company Number: CA-SAMSUNG BIOEPIS-SB-2023-16470

PATIENT
  Age: 54 Year
  Sex: Female
  Weight: 97 kg

DRUGS (4)
  1. INFLIXIMAB [Suspect]
     Active Substance: INFLIXIMAB
     Indication: Crohn^s disease
     Route: 042
  2. BENADRYL [Concomitant]
     Active Substance: DIPHENHYDRAMINE HYDROCHLORIDE
     Indication: Premedication
     Route: 042
  3. PREDNISONE [Concomitant]
     Active Substance: PREDNISONE
     Indication: Product used for unknown indication
     Dosage: UNKNOWN
     Route: 065
  4. SOLU-CORTEF [Concomitant]
     Active Substance: HYDROCORTISONE SODIUM SUCCINATE
     Indication: Premedication
     Dosage: POWDER FOR SOLUTION INTRAMUSCULAR
     Route: 042

REACTIONS (6)
  - Chest discomfort [Recovered/Resolved]
  - Cough [Recovered/Resolved]
  - Feeling hot [Recovered/Resolved]
  - Infusion related reaction [Recovered/Resolved]
  - Injection site mass [Recovered/Resolved]
  - Pain in extremity [Recovered/Resolved]
